FAERS Safety Report 5361954-2 (Version None)
Quarter: 2007Q2

REPORT INFORMATION
  Report Type: 
  Country: None (occurrence: None)
  Receive Date: 20070615
  Receipt Date: 20070615
  Transmission Date: 20071010
  Serious: Yes (Other)
  Sender: FDA-Public Use
  Company Number: None

PATIENT
  Age: 84 Year
  Sex: Female

DRUGS (6)
  1. NITROFURANTOIN [Suspect]
     Dosage: SEE IMAGE
     Dates: start: 20030114, end: 20030801
  2. NITROFURANTOIN [Suspect]
     Dosage: SEE IMAGE
     Dates: start: 20040909, end: 20051109
  3. CARDIA [Concomitant]
  4. COZAAR [Concomitant]
  5. COUMADIN [Concomitant]
  6. LIPITOR [Concomitant]

REACTIONS (7)
  - ALANINE AMINOTRANSFERASE INCREASED [None]
  - ASPARTATE AMINOTRANSFERASE INCREASED [None]
  - BLOOD BILIRUBIN INCREASED [None]
  - HEPATIC FAILURE [None]
  - JAUNDICE [None]
  - LIVER DISORDER [None]
  - OEDEMA PERIPHERAL [None]
